FAERS Safety Report 5411295-X (Version None)
Quarter: 2007Q3

REPORT INFORMATION
  Report Type: 
  Country: None (occurrence: None)
  Receive Date: 20070808
  Receipt Date: 20070724
  Transmission Date: 20080115
  Serious: Yes (Other)
  Sender: FDA-Public Use
  Company Number: GB-1163690

PATIENT
  Age: 79 Year
  Sex: Male

DRUGS (4)
  1. TROPICAMIDE [Suspect]
     Dosage: EYE DROPS, SOLUTION; 1 DF 1/1 TOTAL
     Route: 047
     Dates: start: 20070625, end: 20070625
  2. PHENYLEPHRINE(PHENYLEPHRINE) [Concomitant]
  3. COSOPT(COSOPT) [Concomitant]
  4. FLUORESCEIN(FLUORESCEIN SODIUM) [Concomitant]

REACTIONS (2)
  - CELLULITIS ORBITAL [None]
  - CONJUNCTIVAL HAEMORRHAGE [None]
